FAERS Safety Report 9423382 (Version 1)
Quarter: 2013Q3

REPORT INFORMATION
  Report Type: Spontaneous
  Country: FR (occurrence: FR)
  Receive Date: 20130726
  Receipt Date: 20130726
  Transmission Date: 20140515
  Serious: Yes (Hospitalization)
  Sender: FDA-Public Use
  Company Number: FR-PFIZER INC-2013210021

PATIENT
  Age: 70 Year
  Sex: Male

DRUGS (6)
  1. TAHOR [Suspect]
     Indication: ACUTE CORONARY SYNDROME
     Dosage: 20 MG, 1X/DAY
     Route: 048
     Dates: start: 20130701
  2. TENORMIN [Suspect]
     Indication: ACUTE CORONARY SYNDROME
     Dosage: 50 MG, 1X/DAY
     Route: 048
     Dates: start: 20130701
  3. PERINDOPRIL [Suspect]
     Indication: ACUTE CORONARY SYNDROME
     Dosage: 4 MG, 1X/DAY
     Route: 048
     Dates: start: 20130701, end: 20130707
  4. KARDEGIC [Suspect]
     Indication: ACUTE CORONARY SYNDROME
     Dosage: 75 MG, 1X/DAY
     Route: 048
     Dates: start: 20130701
  5. BRILIQUE [Suspect]
     Indication: ACUTE CORONARY SYNDROME
     Dosage: 90 MG, 2X/DAY
     Route: 048
     Dates: start: 20130701
  6. INEXIUM [Concomitant]
     Indication: GASTROOESOPHAGEAL REFLUX DISEASE
     Dosage: 40 MG, 1X/DAY
     Route: 048

REACTIONS (1)
  - Angioedema [Recovered/Resolved]
